FAERS Safety Report 7812384-2 (Version None)
Quarter: 2011Q4

REPORT INFORMATION
  Report Type: 
  Country: None (occurrence: None)
  Receive Date: 20111011
  Receipt Date: 20111004
  Transmission Date: 20120403
  Serious: Yes (Life-Threatening, Hospitalization)
  Sender: FDA-Public Use
  Company Number: 2010SP019902

PATIENT
  Age: 49 Year
  Sex: Female
  Weight: 76 kg

DRUGS (1)
  1. CLARITIN [Suspect]
     Indication: SEASONAL ALLERGY
     Dosage: 1 DF;ONCE;PO
     Route: 048
     Dates: start: 20080410, end: 20080411

REACTIONS (10)
  - CONVULSION [None]
  - PAIN [None]
  - URTICARIA [None]
  - SKIN OEDEMA [None]
  - ERYTHEMA [None]
  - CHILLS [None]
  - SKIN EXFOLIATION [None]
  - HYPERSENSITIVITY [None]
  - SKIN WARM [None]
  - DRUG HYPERSENSITIVITY [None]
